FAERS Safety Report 8948534 (Version 1)
Quarter: 2012Q4

REPORT INFORMATION
  Report Type: Spontaneous
  Country: GB (occurrence: None)
  Receive Date: 20121123
  Receipt Date: 20121123
  Transmission Date: 20130627
  Serious: Yes (Other)
  Sender: FDA-Public Use
  Company Number: 2012-01677

PATIENT
  Sex: Male

DRUGS (2)
  1. LOSARTAN [Suspect]
  2. LOSARTAN [Suspect]
     Dosage: (50 MG, 1 IN 1 D)

REACTIONS (2)
  - Dizziness [None]
  - Syncope [None]
